FAERS Safety Report 8580976-1 (Version None)
Quarter: 2012Q3

REPORT INFORMATION
  Report Type: 
  Country: None (occurrence: None)
  Receive Date: 20120809
  Receipt Date: 20120803
  Transmission Date: 20120928
  Serious: No
  Sender: FDA-Public Use
  Company Number: US-PFIZER INC-2012177633

PATIENT
  Age: 51 Year
  Sex: Female
  Weight: 68.5 kg

DRUGS (2)
  1. FLAGYL [Suspect]
     Indication: SKIN INFECTION
     Dosage: 500 MG, 3X/DAY FOR 3 DAYS
     Dates: start: 20120430, end: 20120501
  2. FLAGYL [Suspect]
     Dosage: 500 MG, DAILY FROM 4TH DAY
     Dates: start: 20120501, end: 20120503

REACTIONS (2)
  - DRUG HYPERSENSITIVITY [None]
  - URTICARIA [None]
